FAERS Safety Report 8389214-6 (Version None)
Quarter: 2012Q2

REPORT INFORMATION
  Report Type: 
  Country: None (occurrence: None)
  Receive Date: 20120528
  Receipt Date: 20120517
  Transmission Date: 20120825
  Serious: Yes (Other)
  Sender: FDA-Public Use
  Company Number: PHHY2012CA015056

PATIENT
  Sex: Male

DRUGS (6)
  1. AFINITOR [Suspect]
     Dosage: 10 MG, EVERY OTHER DAY (FOR A MONTH)
     Route: 048
  2. AFINITOR [Suspect]
     Indication: CARCINOID TUMOUR
     Dosage: 10 MG, EVERY DAY
     Route: 048
     Dates: start: 20111015
  3. AFINITOR [Suspect]
     Dosage: 5 MG, UNK
     Route: 048
  4. GABAPENTIN [Concomitant]
     Dosage: 300 MG, TID
     Dates: start: 20111221
  5. PANTOPRAZOLE SODIUM [Concomitant]
     Dosage: 40 MG DAILY
     Dates: start: 20111221
  6. SANDOSTATIN LAR [Suspect]
     Indication: CARCINOID TUMOUR
     Dosage: 30 MG, EVERY 4 WEEKS
     Route: 030
     Dates: start: 20110714

REACTIONS (12)
  - WHITE BLOOD CELL COUNT DECREASED [None]
  - JAUNDICE [None]
  - PLATELET COUNT DECREASED [None]
  - BLOOD BILIRUBIN INCREASED [None]
  - LIVER DISORDER [None]
  - WEIGHT DECREASED [None]
  - FATIGUE [None]
  - NEUTROPHIL COUNT DECREASED [None]
  - ABDOMINAL DISCOMFORT [None]
  - HERNIA [None]
  - HEPATIC ENZYME INCREASED [None]
  - HAEMOGLOBIN DECREASED [None]
